FAERS Safety Report 8294364-9 (Version None)
Quarter: 2012Q2

REPORT INFORMATION
  Report Type: 
  Country: None (occurrence: None)
  Receive Date: 20120418
  Receipt Date: 20120416
  Transmission Date: 20120825
  Serious: Yes (Death, Hospitalization, Other)
  Sender: FDA-Public Use
  Company Number: VE-PFIZER INC-2011253969

PATIENT
  Age: 69 Year
  Sex: Female
  Weight: 30 kg

DRUGS (1)
  1. ZOLOFT [Suspect]
     Indication: DEPRESSION
     Dosage: 50 MG, 1X/DAY
     Route: 048
     Dates: start: 20100701

REACTIONS (5)
  - PULMONARY OEDEMA [None]
  - RESPIRATORY ARREST [None]
  - WEIGHT DECREASED [None]
  - DYSPNOEA [None]
  - PNEUMONIA [None]
